FAERS Safety Report 18951423 (Version 1)
Quarter: 2021Q1

REPORT INFORMATION
  Report Type: Spontaneous
  Country: GB (occurrence: GB)
  Receive Date: 20210301
  Receipt Date: 20210301
  Transmission Date: 20210420
  Serious: Yes (Other)
  Sender: FDA-Public Use
  Company Number: GB-ROCHE-2778373

PATIENT
  Sex: Male

DRUGS (2)
  1. RITUXIMAB. [Suspect]
     Active Substance: RITUXIMAB
     Route: 065
     Dates: start: 2013
  2. RITUXIMAB. [Suspect]
     Active Substance: RITUXIMAB
     Indication: IMMUNE THROMBOCYTOPENIA
     Route: 065
     Dates: start: 2010

REACTIONS (4)
  - Immune thrombocytopenia [Unknown]
  - Intentional product use issue [Unknown]
  - Off label use [Unknown]
  - Disease recurrence [Unknown]

NARRATIVE: CASE EVENT DATE: 201602
